FAERS Safety Report 6745016-5 (Version None)
Quarter: 2010Q2

REPORT INFORMATION
  Report Type: 
  Country: None (occurrence: None)
  Receive Date: 20100527
  Receipt Date: 20100525
  Transmission Date: 20101027
  Serious: Yes (Hospitalization)
  Sender: FDA-Public Use
  Company Number: DE-ROCHE-705274

PATIENT
  Sex: Female
  Weight: 65 kg

DRUGS (6)
  1. BEVACIZUMAB [Suspect]
     Indication: BREAST CANCER
     Dosage: FREQUENCY:ON DAY 1 + 21,DOSAGE FORM: INFUSION., LAST DOSE PRIOR TO SAE: 14 MAY 2010
     Route: 042
     Dates: start: 20100219
  2. BEVACIZUMAB [Suspect]
     Route: 042
  3. EPIRUBICIN [Suspect]
     Indication: BREAST CANCER
     Dosage: FREQUENCY: ON DAY 1 AND 21, DOSAGE FORM: I.V.
     Route: 042
     Dates: start: 20100219
  4. CYCLOPHOSPHAMIDE [Suspect]
     Indication: BREAST CANCER
     Dosage: FREQUENCY: ON DAY 1 AND 21, DOSAGE FORM: I.V.
     Route: 042
     Dates: start: 20100219
  5. DOCETAXEL [Suspect]
     Dosage: DATE OF LAST DOSE PRIOR TO SAE: 14 MAY 2010
     Route: 065
     Dates: start: 20100514
  6. CARBAMAZEPINE [Concomitant]

REACTIONS (2)
  - PANIC ATTACK [None]
  - STOMATITIS [None]
